FAERS Safety Report 20740540 (Version 2)
Quarter: 2022Q2

REPORT INFORMATION
  Report Type: Spontaneous
  Country: JP (occurrence: JP)
  Receive Date: 20220422
  Receipt Date: 20220621
  Transmission Date: 20220721
  Serious: Yes (Other)
  Sender: FDA-Public Use
  Company Number: JP-OTSUKA-2022_024166

PATIENT

DRUGS (1)
  1. SAMSCA [Suspect]
     Active Substance: TOLVAPTAN
     Indication: Inappropriate antidiuretic hormone secretion
     Dosage: 3.75 MG/DAY
     Route: 065

REACTIONS (3)
  - Cerebral infarction [Unknown]
  - Fall [Unknown]
  - Rapid correction of hyponatraemia [Unknown]
